FAERS Safety Report 9529390 (Version 1)
Quarter: 2013Q3

REPORT INFORMATION
  Report Type: Spontaneous
  Country: US (occurrence: US)
  Receive Date: 20130917
  Receipt Date: 20130917
  Transmission Date: 20140515
  Serious: Yes (Hospitalization)
  Sender: FDA-Public Use
  Company Number: US-JNJFOC-20130906507

PATIENT
  Sex: Male

DRUGS (11)
  1. XARELTO [Suspect]
     Indication: DEEP VEIN THROMBOSIS
     Route: 048
  2. AUGMENTIN [Concomitant]
     Route: 065
  3. ASA [Concomitant]
     Route: 065
  4. ATENOLOL [Concomitant]
     Route: 065
  5. AZITHROMYCIN [Concomitant]
     Route: 065
  6. NEXIUM [Concomitant]
     Route: 065
  7. LISINOPRIL [Concomitant]
     Route: 065
  8. NITROSTAT [Concomitant]
     Route: 065
  9. SIMVASTATIN [Concomitant]
     Route: 065
  10. WARFARIN [Concomitant]
     Route: 065
  11. TRIAMCINOLONE CREAM [Concomitant]
     Route: 065

REACTIONS (1)
  - White blood cell count decreased [Recovering/Resolving]
